FAERS Safety Report 8276681-1 (Version None)
Quarter: 2012Q2

REPORT INFORMATION
  Report Type: 
  Country: None (occurrence: None)
  Receive Date: 20120412
  Receipt Date: 20120404
  Transmission Date: 20120825
  Serious: Yes (Other)
  Sender: FDA-Public Use
  Company Number: US-BAYER-2012-033297

PATIENT
  Sex: Female

DRUGS (1)
  1. YAZ [Suspect]
     Dosage: UNK
     Route: 048

REACTIONS (3)
  - GENITAL HAEMORRHAGE [None]
  - NO ADVERSE EVENT [None]
  - PREGNANCY ON ORAL CONTRACEPTIVE [None]
